FAERS Safety Report 12771471 (Version 1)
Quarter: 2016Q3

REPORT INFORMATION
  Report Type: Spontaneous
  Country: US (occurrence: US)
  Receive Date: 20160922
  Receipt Date: 20160922
  Transmission Date: 20161109
  Serious: No
  Sender: FDA-Public Use
  Company Number: US-AMGEN-USASP2016022851

PATIENT
  Age: 61 Year
  Sex: Female

DRUGS (5)
  1. NEUPOGEN [Suspect]
     Active Substance: FILGRASTIM
     Indication: PRODUCT USED FOR UNKNOWN INDICATION
     Dosage: 480 MCG, UNK
     Dates: start: 20160218
  2. NEULASTA [Suspect]
     Active Substance: PEGFILGRASTIM
     Indication: PRODUCT USED FOR UNKNOWN INDICATION
     Dosage: 6 MG, UNK
     Route: 065
     Dates: start: 20160221
  3. NEULASTA [Suspect]
     Active Substance: PEGFILGRASTIM
     Dosage: 6 MG, UNK
     Route: 065
     Dates: start: 20160222
  4. NEUPOGEN [Suspect]
     Active Substance: FILGRASTIM
     Dosage: 480 MCG, UNK
     Dates: start: 20160219
  5. NEUPOGEN [Suspect]
     Active Substance: FILGRASTIM
     Dosage: 480 MCG, UNK
     Dates: start: 20160220

REACTIONS (1)
  - Wrong drug administered [Unknown]
